FAERS Safety Report 11771506 (Version 1)
Quarter: 2015Q4

REPORT INFORMATION
  Report Type: Spontaneous
  Country: US (occurrence: None)
  Receive Date: 20151123
  Receipt Date: 20151123
  Transmission Date: 20160304
  Serious: Yes (Hospitalization)
  Sender: FDA-Public Use
  Company Number: None

PATIENT
  Age: 10 Year
  Sex: Male
  Weight: 43.09 kg

DRUGS (2)
  1. IBUPROFEN JUNIOR STRENGTH [Suspect]
     Active Substance: IBUPROFEN
     Indication: PYREXIA
     Dosage: 2.5 PILLS
     Route: 048
  2. IBUPROFEN JUNIOR STRENGTH [Suspect]
     Active Substance: IBUPROFEN
     Indication: HEADACHE
     Dosage: 2.5 PILLS
     Route: 048

REACTIONS (3)
  - Drug hypersensitivity [None]
  - Product quality issue [None]
  - Urticaria [None]
